FAERS Safety Report 6881934-5 (Version None)
Quarter: 2010Q3

REPORT INFORMATION
  Report Type: 
  Country: None (occurrence: None)
  Receive Date: 20100727
  Receipt Date: 20100721
  Transmission Date: 20110219
  Serious: Yes (Other)
  Sender: FDA-Public Use
  Company Number: RB-13296-2010

PATIENT
  Age: 36 Year
  Sex: Male

DRUGS (1)
  1. SUBOXONE [Suspect]
     Indication: DRUG DEPENDENCE
     Dosage: (4-8 MG DAILY SUBLINGUAL)
     Route: 060
     Dates: start: 20060601, end: 20100705

REACTIONS (5)
  - HALLUCINATION [None]
  - INSOMNIA [None]
  - MUSCLE TWITCHING [None]
  - SUICIDAL IDEATION [None]
  - WITHDRAWAL SYNDROME [None]
